FAERS Safety Report 14715061 (Version 2)
Quarter: 2018Q3

REPORT INFORMATION
  Report Type: Spontaneous
  Country: US (occurrence: US)
  Receive Date: 20180404
  Receipt Date: 20180706
  Transmission Date: 20181010
  Serious: Yes (Hospitalization, Other)
  Sender: FDA-Public Use
  Company Number: US-BAYER-2018-060151

PATIENT
  Sex: Female

DRUGS (2)
  1. ACETYLSALICYLIC ACID({=100 MG) [Suspect]
     Active Substance: ASPIRIN
     Dosage: UNK
  2. PARACETAMOL [Suspect]
     Active Substance: ACETAMINOPHEN
     Dosage: UNK

REACTIONS (2)
  - Exposure during pregnancy [Recovering/Resolving]
  - Overdose [Recovering/Resolving]
